FAERS Safety Report 14468988 (Version 3)
Quarter: 2019Q2

REPORT INFORMATION
  Report Type: Spontaneous
  Country: US (occurrence: US)
  Receive Date: 20180131
  Receipt Date: 20190422
  Transmission Date: 20190711
  Serious: No
  Sender: FDA-Public Use
  Company Number: US-PFIZER INC-2018038485

PATIENT

DRUGS (10)
  1. METHYLPHENIDATE - SLOW RELEASE [Concomitant]
     Active Substance: METHYLPHENIDATE
     Dosage: 54 MG, DAILY
     Route: 065
  2. METHYLPHENIDATE HYDROCHLORIDE. [Concomitant]
     Active Substance: METHYLPHENIDATE HYDROCHLORIDE
     Dosage: 20MG/15ML, ONCE DAILY
     Route: 065
     Dates: start: 201512
  3. QUILLIVANT XR [Suspect]
     Active Substance: METHYLPHENIDATE HYDROCHLORIDE
     Indication: ATTENTION DEFICIT/HYPERACTIVITY DISORDER
     Dosage: 11 ML, DAILY
     Route: 065
     Dates: start: 201602
  4. QUILLIVANT XR [Suspect]
     Active Substance: METHYLPHENIDATE HYDROCHLORIDE
     Indication: AUTISM SPECTRUM DISORDER
  5. METHYLPHENIDATE - SLOW RELEASE [Concomitant]
     Active Substance: METHYLPHENIDATE
  6. LISINOPRIL. [Concomitant]
     Active Substance: LISINOPRIL
     Indication: PRODUCT USED FOR UNKNOWN INDICATION
     Dosage: 2.5 MG, 1X/DAY
     Route: 065
     Dates: start: 201701
  7. QUILLIVANT XR [Suspect]
     Active Substance: METHYLPHENIDATE HYDROCHLORIDE
     Indication: OBSESSIVE-COMPULSIVE DISORDER
  8. METHYLPHENIDATE HYDROCHLORIDE. [Concomitant]
     Active Substance: METHYLPHENIDATE HYDROCHLORIDE
  9. METHYLPHENIDATE - SLOW RELEASE [Concomitant]
     Active Substance: METHYLPHENIDATE
  10. METHYLPHENIDATE HYDROCHLORIDE. [Concomitant]
     Active Substance: METHYLPHENIDATE HYDROCHLORIDE

REACTIONS (2)
  - Product dose omission [Unknown]
  - Condition aggravated [Unknown]
